FAERS Safety Report 21403482 (Version 1)
Quarter: 2022Q4

REPORT INFORMATION
  Report Type: Other
  Country: GB (occurrence: GB)
  Receive Date: 20221003
  Receipt Date: 20221003
  Transmission Date: 20230113
  Serious: Yes (Other)
  Sender: FDA-Public Use
  Company Number: None

PATIENT
  Age: 4 Year
  Sex: Male
  Weight: 19 kg

DRUGS (4)
  1. IBUPROFEN [Interacting]
     Active Substance: IBUPROFEN
     Indication: Pain
     Dosage: UNK (AT 8PM)
     Route: 065
     Dates: start: 20220922, end: 20220922
  2. IBUPROFEN [Interacting]
     Active Substance: IBUPROFEN
     Indication: Body temperature
  3. IBUPROFEN [Interacting]
     Active Substance: IBUPROFEN
     Indication: Adverse drug reaction
  4. CIPROFLOXACIN [Interacting]
     Active Substance: CIPROFLOXACIN
     Indication: Pseudomonas infection
     Dosage: 7.6 MILLILITER, BID (7.6ML TWICE A DAY) (AT 6PM)
     Route: 065
     Dates: start: 20220920

REACTIONS (4)
  - Drug interaction [Unknown]
  - Urticaria [Recovered/Resolved]
  - Swelling [Recovered/Resolved]
  - Skin burning sensation [Recovered/Resolved]

NARRATIVE: CASE EVENT DATE: 20220901
